FAERS Safety Report 24773030 (Version 3)
Quarter: 2025Q2

REPORT INFORMATION
  Report Type: Report from Study
  Country: US (occurrence: US)
  Receive Date: 20241225
  Receipt Date: 20250416
  Transmission Date: 20250716
  Serious: Yes (Other)
  Sender: TAKEDA
  Company Number: US-TAKEDA-2022TUS070800

PATIENT
  Age: 57 Year
  Sex: Male

DRUGS (9)
  1. BRIGATINIB [Suspect]
     Active Substance: BRIGATINIB
     Indication: Pulmonary function test abnormal
     Dosage: 180 MILLIGRAM, QD
     Dates: start: 20220811
  2. BRIGATINIB [Suspect]
     Active Substance: BRIGATINIB
     Indication: Lung neoplasm malignant
     Dosage: 180 MILLIGRAM, QD
  3. BRIGATINIB [Suspect]
     Active Substance: BRIGATINIB
     Dosage: 180 MILLIGRAM, QD
  4. BRIGATINIB [Suspect]
     Active Substance: BRIGATINIB
     Dosage: 180 MILLIGRAM, QD
  5. BRIGATINIB [Suspect]
     Active Substance: BRIGATINIB
     Dosage: 180 MILLIGRAM, QD
  6. BRIGATINIB [Suspect]
     Active Substance: BRIGATINIB
  7. HYDROCODONE [Concomitant]
     Active Substance: HYDROCODONE
     Indication: Pain
  8. METAMUCIL [Concomitant]
     Active Substance: PLANTAGO SEED
  9. ZOMETA [Concomitant]
     Active Substance: ZOLEDRONIC ACID

REACTIONS (26)
  - Thrombosis [Unknown]
  - Atrioventricular block [Unknown]
  - Increased tendency to bruise [Unknown]
  - Exostosis of jaw [Unknown]
  - Dry eye [Unknown]
  - Glycosylated haemoglobin increased [Unknown]
  - COVID-19 [Unknown]
  - Bladder disorder [Unknown]
  - Prostatic disorder [Unknown]
  - Feeling hot [Unknown]
  - Blood pressure abnormal [Unknown]
  - Influenza [Unknown]
  - Sensitive skin [Unknown]
  - Skin fissures [Unknown]
  - Skin exfoliation [Unknown]
  - Peripheral swelling [Recovered/Resolved]
  - Dry skin [Unknown]
  - Erythema [Unknown]
  - Pain in extremity [Unknown]
  - Pruritus [Unknown]
  - Pain [Unknown]
  - Rash [Unknown]
  - Fatigue [Unknown]
  - Hypertension [Unknown]
  - Diarrhoea [Unknown]
  - Flatulence [Unknown]

NARRATIVE: CASE EVENT DATE: 20220901
